FAERS Safety Report 16259664 (Version 1)
Quarter: 2019Q2

REPORT INFORMATION
  Report Type: Spontaneous
  Country: US (occurrence: US)
  Receive Date: 20190326
  Receipt Date: 20190326
  Transmission Date: 20190711
  Serious: Yes (Hospitalization)
  Sender: FDA-Public Use
  Company Number: None

PATIENT
  Age: 77 Year
  Sex: Male

DRUGS (1)
  1. FUROSEMIDE. [Suspect]
     Active Substance: FUROSEMIDE
     Indication: CARDIAC FAILURE CONGESTIVE
     Route: 048
     Dates: start: 20180308, end: 20181221

REACTIONS (5)
  - Dizziness [None]
  - Hypovolaemia [None]
  - Rib fracture [None]
  - Presyncope [None]
  - Fall [None]

NARRATIVE: CASE EVENT DATE: 20181221
